FAERS Safety Report 5629914-1 (Version None)
Quarter: 2008Q1

REPORT INFORMATION
  Report Type: 
  Country: None (occurrence: None)
  Receive Date: 20080213
  Receipt Date: 20080131
  Transmission Date: 20080703
  Serious: Yes (Other)
  Sender: FDA-Public Use
  Company Number: 2008S1001681

PATIENT
  Age: 60 Year
  Sex: Female

DRUGS (5)
  1. DIAFORMIN (METFORMIN HYDROCHLORIDE) (500 MG) [Suspect]
     Indication: TYPE 2 DIABETES MELLITUS
     Dosage: 500 MG;TWICE A DAY;ORAL
     Route: 048
     Dates: start: 20010101
  2. DIAMICRON [Concomitant]
  3. NOVONORM [Concomitant]
  4. LEVOTHYROXINE SODIUM [Concomitant]
  5. INDOMETHACIN [Concomitant]

REACTIONS (2)
  - BLOOD GLUCOSE INCREASED [None]
  - PERNICIOUS ANAEMIA [None]
